FAERS Safety Report 9374465 (Version 7)
Quarter: 2014Q1

REPORT INFORMATION
  Report Type: Report from Study
  Country: US (occurrence: US)
  Receive Date: 20130628
  Receipt Date: 20140113
  Transmission Date: 20141002
  Serious: Yes (Hospitalization)
  Sender: FDA-Public Use
  Company Number: US-JNJFOC-20130615448

PATIENT
  Age: 40 Year
  Sex: Male
  Weight: 68.04 kg

DRUGS (9)
  1. USTEKINUMAB [Suspect]
     Indication: PSORIASIS
     Route: 058
     Dates: start: 20120703
  2. USTEKINUMAB [Suspect]
     Indication: PSORIASIS
     Route: 058
     Dates: start: 201310
  3. USTEKINUMAB [Suspect]
     Indication: PSORIASIS
     Route: 058
     Dates: start: 201307
  4. USTEKINUMAB [Suspect]
     Indication: PSORIASIS
     Route: 058
     Dates: start: 20130122
  5. USTEKINUMAB [Suspect]
     Indication: PSORIASIS
     Route: 058
     Dates: start: 20120808
  6. USTEKINUMAB [Suspect]
     Indication: PSORIASIS
     Route: 058
     Dates: start: 20121030
  7. LISINOPRIL [Concomitant]
     Route: 048
     Dates: start: 2010
  8. LIPITOR [Concomitant]
     Route: 048
     Dates: start: 2010
  9. VANOS [Concomitant]
     Route: 061

REACTIONS (1)
  - Cellulitis [Recovered/Resolved]
